FAERS Safety Report 6929279-9 (Version None)
Quarter: 2010Q3

REPORT INFORMATION
  Report Type: 
  Country: None (occurrence: None)
  Receive Date: 20100817
  Receipt Date: 20100621
  Transmission Date: 20110219
  Serious: No
  Sender: FDA-Public Use
  Company Number: US-ALLERGAN-1008127US

PATIENT
  Sex: Female

DRUGS (2)
  1. ACUVAIL [Suspect]
     Indication: PROPHYLAXIS
     Dosage: 1 GTT, BID
     Route: 047
     Dates: start: 20100608
  2. INSULIN PUMP [Concomitant]

REACTIONS (1)
  - INFUSION SITE HAEMORRHAGE [None]
